FAERS Safety Report 7719635-3 (Version None)
Quarter: 2011Q3

REPORT INFORMATION
  Report Type: 
  Country: None (occurrence: None)
  Receive Date: 20110830
  Receipt Date: 20110826
  Transmission Date: 20111222
  Serious: Yes (Death, Hospitalization, Other)
  Sender: FDA-Public Use
  Company Number: US-ABBOTT-11P-163-0849567-00

PATIENT
  Sex: Male
  Weight: 61.29 kg

DRUGS (8)
  1. HUMIRA [Suspect]
     Dates: start: 20110101
  2. HUMIRA [Suspect]
     Dosage: ONE DOSE ONLY
     Dates: start: 20101107, end: 20101107
  3. HUMIRA [Suspect]
     Indication: CROHN'S DISEASE
     Dosage: ONE DOSE ONLY
     Dates: start: 20101105, end: 20101105
  4. IMURAN [Concomitant]
     Indication: CROHN'S DISEASE
  5. ASCORBIC ACID [Concomitant]
     Indication: VITAMIN SUPPLEMENTATION
  6. HUMIRA [Suspect]
     Dates: start: 20101111, end: 20101201
  7. HUMIRA [Suspect]
     Route: 042
     Dates: start: 20110101, end: 20110101
  8. FERROUS SULFATE TAB [Concomitant]
     Indication: SUPPLEMENTATION THERAPY

REACTIONS (12)
  - VOMITING [None]
  - CHOLELITHIASIS [None]
  - ARTHRALGIA [None]
  - CHOLECYSTITIS [None]
  - ASTHENIA [None]
  - PAIN IN EXTREMITY [None]
  - WEIGHT DECREASED [None]
  - MALAISE [None]
  - PLEURAL EFFUSION [None]
  - ABDOMINAL PAIN UPPER [None]
  - RESPIRATION ABNORMAL [None]
  - OEDEMA PERIPHERAL [None]
